FAERS Safety Report 19085559 (Version 2)
Quarter: 2021Q2

REPORT INFORMATION
  Report Type: Spontaneous
  Country: EG (occurrence: EG)
  Receive Date: 20210401
  Receipt Date: 20210409
  Transmission Date: 20210717
  Serious: Yes (Other)
  Sender: FDA-Public Use
  Company Number: EG-BAXTER-2021BAX006062

PATIENT
  Age: 60 Year
  Sex: Female

DRUGS (4)
  1. ENDOXAN 1G [Suspect]
     Active Substance: CYCLOPHOSPHAMIDE
     Dosage: VIAL, DOSE RE?INTRODUCED, 2ND CYCLE
     Route: 042
     Dates: start: 20210225
  2. ADRICIN (DOXORUBICIN HYDROCHLORIDE) [Suspect]
     Active Substance: DOXORUBICIN HYDROCHLORIDE
     Dosage: 50MG/25ML VIAL, DOSE RE?INTRODUCED, 2ND  CYCLE
     Route: 042
     Dates: start: 20210225
  3. ENDOXAN 1G [Suspect]
     Active Substance: CYCLOPHOSPHAMIDE
     Indication: BREAST CANCER FEMALE
     Dosage: VIAL, 1ST CYCLE
     Route: 042
  4. ADRICIN (DOXORUBICIN HYDROCHLORIDE) [Suspect]
     Active Substance: DOXORUBICIN HYDROCHLORIDE
     Indication: BREAST CANCER FEMALE
     Dosage: 50MG/25ML VIAL, 1ST CYCLE
     Route: 042

REACTIONS (6)
  - Bone pain [Recovered/Resolved]
  - Malaise [Recovered/Resolved]
  - Neutropenia [Recovered/Resolved]
  - Leukopenia [Recovered/Resolved]
  - Vomiting [Recovered/Resolved]
  - Headache [Recovered/Resolved]
